FAERS Safety Report 6651543-1 (Version None)
Quarter: 2010Q1

REPORT INFORMATION
  Report Type: 
  Country: None (occurrence: None)
  Receive Date: 20100325
  Receipt Date: 20100322
  Transmission Date: 20100710
  Serious: Yes (Other)
  Sender: FDA-Public Use
  Company Number: A0851377A

PATIENT
  Age: 67 Year
  Sex: Female

DRUGS (13)
  1. ADVAIR DISKUS 100/50 [Suspect]
     Indication: CHRONIC OBSTRUCTIVE PULMONARY DISEASE
     Dosage: 1PUFF TWICE PER DAY
     Route: 055
     Dates: start: 20100101, end: 20100223
  2. SPIRIVA [Suspect]
     Dosage: 1PUFF PER DAY
     Route: 055
     Dates: start: 20090101, end: 20100223
  3. ALBUTEROL [Concomitant]
  4. IPRATROPIUM [Concomitant]
  5. CEFUROXIME SODIUM [Concomitant]
  6. PREDNISONE [Concomitant]
  7. ZITHROMAX [Concomitant]
  8. JANUMET [Concomitant]
  9. GLIMEPIRIDE [Concomitant]
  10. LISINOPRIL [Concomitant]
  11. AMLODIPINE [Concomitant]
  12. OMEPRAZOLE [Concomitant]
  13. SUCRALFATE [Concomitant]

REACTIONS (5)
  - DRUG ADMINISTRATION ERROR [None]
  - DRUG INEFFECTIVE [None]
  - EXPIRED DRUG ADMINISTERED [None]
  - HAEMOPTYSIS [None]
  - PNEUMONIA [None]
